FAERS Safety Report 8879721 (Version 5)
Quarter: 2014Q3

REPORT INFORMATION
  Report Type: Spontaneous
  Country: US (occurrence: US)
  Receive Date: 20121031
  Receipt Date: 20140819
  Transmission Date: 20150326
  Serious: Yes (Hospitalization, Other)
  Sender: FDA-Public Use
  Company Number: US-009507513-1210USA012634

PATIENT
  Sex: Female
  Weight: 104.31 kg

DRUGS (3)
  1. NUVARING [Suspect]
     Active Substance: ETHINYL ESTRADIOL\ETONOGESTREL
     Indication: HIRSUTISM
  2. NUVARING [Suspect]
     Active Substance: ETHINYL ESTRADIOL\ETONOGESTREL
     Indication: MENORRHAGIA
     Dosage: UNK
     Route: 067
     Dates: start: 20091109, end: 201011
  3. NUVARING [Suspect]
     Active Substance: ETHINYL ESTRADIOL\ETONOGESTREL
     Indication: POLYCYSTIC OVARIES

REACTIONS (28)
  - Hypotension [Unknown]
  - Joint surgery [Unknown]
  - Asthma exercise induced [Unknown]
  - Hypothyroidism [Unknown]
  - Deep vein thrombosis [Not Recovered/Not Resolved]
  - Sinus tachycardia [Unknown]
  - Diabetes mellitus [Unknown]
  - Anxiety [Unknown]
  - Amenorrhoea [Unknown]
  - Pulmonary embolism [Not Recovered/Not Resolved]
  - Mitral valve calcification [Unknown]
  - Off label use [Unknown]
  - Musculoskeletal chest pain [Unknown]
  - Influenza [Unknown]
  - Aortic valve incompetence [Unknown]
  - Anxiety [Unknown]
  - Drug ineffective [Unknown]
  - Pulmonary infarction [Unknown]
  - Adverse drug reaction [Unknown]
  - Thyroid disorder [Unknown]
  - Cardiomegaly [Unknown]
  - Rash [Unknown]
  - Hypertension [Unknown]
  - Pulmonary embolism [Not Recovered/Not Resolved]
  - Tricuspid valve incompetence [Unknown]
  - Bronchitis [Unknown]
  - Endometriosis ablation [Unknown]
  - Vulval abscess [Unknown]

NARRATIVE: CASE EVENT DATE: 20091109
